FAERS Safety Report 10186101 (Version 2)
Quarter: 2014Q2

REPORT INFORMATION
  Report Type: Report from Study
  Country: JP (occurrence: JP)
  Receive Date: 20140521
  Receipt Date: 20140521
  Transmission Date: 20141212
  Serious: Yes (Other)
  Sender: FDA-Public Use
  Company Number: JP-CELGENEUS-087-21880-11053244

PATIENT
  Age: 75 Year
  Sex: Female

DRUGS (123)
  1. REVLIMID [Suspect]
     Indication: PLASMA CELL MYELOMA
     Dosage: 25 MILLIGRAM
     Route: 048
     Dates: start: 20101024, end: 20101113
  2. REVLIMID [Suspect]
     Dosage: 25 MILLIGRAM
     Route: 048
     Dates: start: 20101121, end: 20101211
  3. REVLIMID [Suspect]
     Dosage: 25 MILLIGRAM
     Route: 048
     Dates: start: 20101219, end: 20110108
  4. REVLIMID [Suspect]
     Dosage: 25 MILLIGRAM
     Route: 048
     Dates: start: 20110116, end: 20110205
  5. REVLIMID [Suspect]
     Dosage: 25 MILLIGRAM
     Route: 048
     Dates: start: 20110213, end: 20110305
  6. REVLIMID [Suspect]
     Dosage: 20 MILLIGRAM
     Route: 048
     Dates: start: 20110313, end: 20110402
  7. REVLIMID [Suspect]
     Dosage: 15 MILLIGRAM
     Route: 048
     Dates: start: 20110410, end: 20110430
  8. REVLIMID [Suspect]
     Dosage: 15 MILLIGRAM
     Route: 048
     Dates: start: 20110508, end: 20110528
  9. REVLIMID [Suspect]
     Dosage: 20 MILLIGRAM
     Route: 048
     Dates: start: 20110605, end: 20110625
  10. REVLIMID [Suspect]
     Dosage: 20 MILLIGRAM
     Route: 048
     Dates: start: 20110703, end: 20110723
  11. REVLIMID [Suspect]
     Dosage: 20 MILLIGRAM
     Route: 048
     Dates: start: 20110731, end: 20110820
  12. REVLIMID [Suspect]
     Dosage: 20 MILLIGRAM
     Route: 048
     Dates: start: 20110828, end: 20110917
  13. REVLIMID [Suspect]
     Dosage: 20 MILLIGRAM
     Route: 048
     Dates: start: 20110925, end: 20111015
  14. REVLIMID [Suspect]
     Dosage: 20 MILLIGRAM
     Route: 048
     Dates: start: 20111023, end: 20111113
  15. REVLIMID [Suspect]
     Dosage: 20 MILLIGRAM
     Route: 048
     Dates: start: 20111120, end: 20111210
  16. REVLIMID [Suspect]
     Dosage: 20 MILLIGRAM
     Route: 048
     Dates: start: 20111218, end: 20120107
  17. REVLIMID [Suspect]
     Dosage: 20 MILLIGRAM
     Route: 048
     Dates: start: 20120115, end: 20120204
  18. REVLIMID [Suspect]
     Dosage: 20 MILLIGRAM
     Route: 048
     Dates: start: 20120212, end: 20120303
  19. REVLIMID [Suspect]
     Dosage: 20 MILLIGRAM
     Route: 048
     Dates: start: 20120311, end: 20120331
  20. REVLIMID [Suspect]
     Dosage: 20 MILLIGRAM
     Route: 048
     Dates: start: 20120408, end: 20120428
  21. REVLIMID [Suspect]
     Dosage: 20 MILLIGRAM
     Route: 048
     Dates: start: 20120506, end: 20120526
  22. REVLIMID [Suspect]
     Dosage: 20 MILLIGRAM
     Route: 048
     Dates: start: 20120603, end: 20120623
  23. REVLIMID [Suspect]
     Dosage: 15 MILLIGRAM
     Route: 048
     Dates: start: 20120708, end: 20120728
  24. REVLIMID [Suspect]
     Dosage: 15 MILLIGRAM
     Route: 048
     Dates: start: 20120805, end: 20120825
  25. REVLIMID [Suspect]
     Dosage: 15 MILLIGRAM
     Route: 048
     Dates: start: 20120902, end: 20120922
  26. REVLIMID [Suspect]
     Dosage: 15 MILLIGRAM
     Route: 048
     Dates: start: 20120930, end: 20121020
  27. REVLIMID [Suspect]
     Dosage: 15 MILLIGRAM
     Route: 048
     Dates: start: 20121028, end: 20121117
  28. REVLIMID [Suspect]
     Dosage: 15 MILLIGRAM
     Route: 048
     Dates: start: 20121125, end: 20121215
  29. REVLIMID [Suspect]
     Dosage: 15 MILLIGRAM
     Route: 048
     Dates: start: 20121223, end: 20130112
  30. REVLIMID [Suspect]
     Dosage: 15 MILLIGRAM
     Route: 048
     Dates: start: 20130120, end: 20130209
  31. REVLIMID [Suspect]
     Dosage: 15 MILLIGRAM
     Route: 048
     Dates: start: 20130217, end: 20130309
  32. REVLIMID [Suspect]
     Dosage: 15 MILLIGRAM
     Route: 048
     Dates: start: 20130317, end: 20130330
  33. REVLIMID [Suspect]
     Dosage: 20 MILLIGRAM
     Route: 048
     Dates: start: 20130331, end: 20130406
  34. REVLIMID [Suspect]
     Dosage: 20 MILLIGRAM
     Route: 048
     Dates: start: 20130414, end: 20130504
  35. REVLIMID [Suspect]
     Dosage: 20 MILLIGRAM
     Route: 048
     Dates: start: 20130512, end: 20130601
  36. REVLIMID [Suspect]
     Dosage: 20 MILLIGRAM
     Route: 048
     Dates: start: 20130609, end: 20130629
  37. REVLIMID [Suspect]
     Dosage: 20 MILLIGRAM
     Route: 048
     Dates: start: 20130707, end: 20130727
  38. REVLIMID [Suspect]
     Dosage: 20 MILLIGRAM
     Route: 048
     Dates: start: 20130804, end: 20130824
  39. REVLIMID [Suspect]
     Dosage: 20 MILLIGRAM
     Route: 048
     Dates: start: 20130901, end: 20130921
  40. REVLIMID [Suspect]
     Dosage: 20 MILLIGRAM
     Route: 048
     Dates: start: 20130929, end: 20131019
  41. REVLIMID [Suspect]
     Dosage: 20 MILLIGRAM
     Route: 048
     Dates: start: 20131027, end: 20131116
  42. LENADEX [Suspect]
     Indication: PLASMA CELL MYELOMA
     Dosage: 40 MILLIGRAM
     Route: 048
     Dates: start: 20101024, end: 20101025
  43. LENADEX [Suspect]
     Dosage: 32 MILLIGRAM
     Route: 048
     Dates: start: 20101101, end: 20101102
  44. LENADEX [Suspect]
     Dosage: 24 MILLIGRAM
     Route: 048
     Dates: start: 20101103, end: 20101104
  45. LENADEX [Suspect]
     Dosage: 40 MILLIGRAM
     Route: 048
     Dates: start: 20101121, end: 20101122
  46. LENADEX [Suspect]
     Dosage: 32 MILLIGRAM
     Route: 048
     Dates: start: 20101123, end: 20101124
  47. LENADEX [Suspect]
     Dosage: 24 MILLIGRAM
     Route: 048
     Dates: start: 20101129, end: 20101130
  48. LENADEX [Suspect]
     Dosage: 16 MILLIGRAM
     Route: 048
     Dates: start: 20101201, end: 20101202
  49. LENADEX [Suspect]
     Dosage: 40 MILLIGRAM
     Route: 048
     Dates: start: 20101219, end: 20101220
  50. LENADEX [Suspect]
     Dosage: 32 MILLIGRAM
     Route: 048
     Dates: start: 20101221, end: 20101222
  51. LENADEX [Suspect]
     Dosage: 24 MILLIGRAM
     Route: 048
     Dates: start: 20101227, end: 20101228
  52. LENADEX [Suspect]
     Dosage: 16 MILLIGRAM
     Route: 048
     Dates: start: 20101229, end: 20101230
  53. LENADEX [Suspect]
     Dosage: 40 MILLIGRAM
     Route: 048
     Dates: start: 20110116, end: 20110117
  54. LENADEX [Suspect]
     Dosage: 32 MILLIGRAM
     Route: 048
     Dates: start: 20110118, end: 20110119
  55. LENADEX [Suspect]
     Dosage: 24 MILLIGRAM
     Route: 048
     Dates: start: 20110124, end: 20110125
  56. LENADEX [Suspect]
     Dosage: 16 MILLIGRAM
     Route: 048
     Dates: start: 20110126, end: 20110127
  57. LENADEX [Suspect]
     Dosage: 24 MILLIGRAM
     Route: 048
     Dates: start: 20110213, end: 20110214
  58. LENADEX [Suspect]
     Dosage: 16 MILLIGRAM
     Route: 048
     Dates: start: 20110215, end: 20110216
  59. LENADEX [Suspect]
     Dosage: 16 MILLIGRAM
     Route: 048
     Dates: start: 20110313, end: 20110314
  60. LENADEX [Suspect]
     Dosage: 12 MILLIGRAM
     Route: 048
     Dates: start: 20110410, end: 20110411
  61. LENADEX [Suspect]
     Dosage: 4 MILLIGRAM
     Route: 048
     Dates: start: 20110412, end: 20110413
  62. LENADEX [Suspect]
     Dosage: 12 MILLIGRAM
     Route: 048
     Dates: start: 20110508, end: 20110509
  63. LENADEX [Suspect]
     Dosage: 4 MILLIGRAM
     Route: 048
     Dates: start: 20110510, end: 20110511
  64. LENADEX [Suspect]
     Dosage: 12 MILLIGRAM
     Route: 048
     Dates: start: 20110605, end: 20110606
  65. LENADEX [Suspect]
     Dosage: 4 MILLIGRAM
     Route: 048
     Dates: start: 20110607, end: 20110608
  66. LENADEX [Suspect]
     Dosage: 12 MILLIGRAM
     Route: 048
     Dates: start: 20110703, end: 20110704
  67. LENADEX [Suspect]
     Dosage: 4 MILLIGRAM
     Route: 048
     Dates: start: 20110705, end: 20110706
  68. LENADEX [Suspect]
     Dosage: 8 MILLIGRAM
     Route: 048
     Dates: start: 20110731, end: 20110801
  69. LENADEX [Suspect]
     Dosage: 4 MILLIGRAM
     Route: 048
     Dates: start: 20110802, end: 20110803
  70. LENADEX [Suspect]
     Dosage: 8 MILLIGRAM
     Route: 048
     Dates: start: 20110828, end: 20110829
  71. LENADEX [Suspect]
     Dosage: 4 MILLIGRAM
     Route: 048
     Dates: start: 20110830, end: 20110831
  72. LENADEX [Suspect]
     Dosage: 4 MILLIGRAM
     Route: 048
     Dates: start: 20111023, end: 20111024
  73. LENADEX [Suspect]
     Dosage: 8 MILLIGRAM
     Route: 048
     Dates: start: 20111218, end: 20111219
  74. LENADEX [Suspect]
     Dosage: 4 MILLIGRAM
     Route: 048
     Dates: start: 20111220, end: 20111221
  75. LENADEX [Suspect]
     Dosage: 8 MILLIGRAM
     Route: 048
     Dates: start: 20120115, end: 20120116
  76. LENADEX [Suspect]
     Dosage: 4 MILLIGRAM
     Route: 048
     Dates: start: 20120117, end: 20120118
  77. LENADEX [Suspect]
     Dosage: 8 MILLIGRAM
     Route: 048
     Dates: start: 20120212, end: 20120213
  78. LENADEX [Suspect]
     Dosage: 4 MILLIGRAM
     Route: 048
     Dates: start: 20120214, end: 20120215
  79. LENADEX [Suspect]
     Dosage: 8 MILLIGRAM
     Route: 048
     Dates: start: 20120311, end: 20120312
  80. LENADEX [Suspect]
     Dosage: 4 MILLIGRAM
     Route: 048
     Dates: start: 20120313, end: 20120314
  81. LENADEX [Suspect]
     Dosage: 8 MILLIGRAM
     Route: 048
     Dates: start: 20120408, end: 20120409
  82. LENADEX [Suspect]
     Dosage: 4 MILLIGRAM
     Route: 048
     Dates: start: 20120410, end: 20120411
  83. LENADEX [Suspect]
     Dosage: 8 MILLIGRAM
     Route: 048
     Dates: start: 20120506, end: 20120507
  84. LENADEX [Suspect]
     Dosage: 4 MILLIGRAM
     Route: 048
     Dates: start: 20120508, end: 20120509
  85. LENADEX [Suspect]
     Dosage: 8 MILLIGRAM
     Route: 048
     Dates: start: 20120603, end: 20120604
  86. LENADEX [Suspect]
     Dosage: 4 MILLIGRAM
     Route: 048
     Dates: start: 20120605, end: 20120606
  87. LENADEX [Suspect]
     Dosage: 8 MILLIGRAM
     Route: 048
     Dates: start: 20120708, end: 20120709
  88. LENADEX [Suspect]
     Dosage: 4 MILLIGRAM
     Route: 048
     Dates: start: 20120710, end: 20120711
  89. LENADEX [Suspect]
     Dosage: 8 MILLIGRAM
     Route: 048
     Dates: start: 20120805, end: 20120806
  90. LENADEX [Suspect]
     Dosage: 4 MILLIGRAM
     Route: 048
     Dates: start: 20120807, end: 20120808
  91. LENADEX [Suspect]
     Dosage: 8 MILLIGRAM
     Route: 048
     Dates: start: 20120902, end: 20120903
  92. LENADEX [Suspect]
     Dosage: 4 MILLIGRAM
     Route: 048
     Dates: start: 20120904, end: 20120905
  93. LENADEX [Suspect]
     Dosage: 4 MILLIGRAM
     Route: 048
     Dates: start: 20120930, end: 20121001
  94. LENADEX [Suspect]
     Dosage: 4 MILLIGRAM
     Route: 048
     Dates: start: 20121028, end: 20121029
  95. LENADEX [Suspect]
     Dosage: 4 MILLIGRAM
     Route: 048
     Dates: start: 20121125, end: 20121126
  96. LENADEX [Suspect]
     Dosage: 4 MILLIGRAM
     Route: 048
     Dates: start: 20121223, end: 20121224
  97. LENADEX [Suspect]
     Dosage: 4 MILLIGRAM
     Route: 048
     Dates: start: 20130120, end: 20130121
  98. LENADEX [Suspect]
     Dosage: 4 MILLIGRAM
     Route: 048
     Dates: start: 20130217, end: 20130218
  99. LENADEX [Suspect]
     Dosage: 4 MILLIGRAM
     Route: 048
     Dates: start: 20130414, end: 20130417
  100. LENADEX [Suspect]
     Dosage: 4 MILLIGRAM
     Route: 048
     Dates: start: 20130512, end: 20130515
  101. LENADEX [Suspect]
     Dosage: 4 MILLIGRAM
     Route: 048
     Dates: start: 20130609, end: 20130612
  102. LENADEX [Suspect]
     Dosage: 4 MILLIGRAM
     Route: 048
     Dates: start: 20130707, end: 20130710
  103. LENADEX [Suspect]
     Dosage: 4 MILLIGRAM
     Route: 048
     Dates: start: 20130804, end: 20130807
  104. LENADEX [Suspect]
     Dosage: 4 MILLIGRAM
     Route: 048
     Dates: start: 20130901, end: 20130904
  105. LENADEX [Suspect]
     Dosage: 4 MILLIGRAM
     Route: 048
     Dates: start: 20130929, end: 20131002
  106. LENADEX [Suspect]
     Dosage: 4 MILLIGRAM
     Route: 048
     Dates: start: 20131027, end: 20131030
  107. LENADEX [Suspect]
     Dosage: 4 MILLIGRAM
     Route: 048
     Dates: start: 20130317, end: 20130318
  108. LENADEX [Suspect]
     Dosage: 8 MILLIGRAM
     Route: 048
     Dates: start: 20110315, end: 20110316
  109. ENDOXAN [Concomitant]
     Indication: PLASMA CELL MYELOMA RECURRENT
     Dosage: 50 MILLIGRAM
     Route: 048
     Dates: start: 20120708
  110. ENDOXAN [Concomitant]
     Route: 048
     Dates: start: 20121028
  111. RENIVEZE [Concomitant]
     Indication: HYPERTENSION
     Route: 048
     Dates: end: 20111022
  112. TRASACOR [Concomitant]
     Indication: HYPERTENSION
     Route: 048
     Dates: end: 20111022
  113. PRORENAL [Concomitant]
     Indication: PLASMA CELL MYELOMA
     Route: 048
     Dates: end: 20111022
  114. KARIKUROMONE [Concomitant]
     Indication: PLASMA CELL MYELOMA
     Route: 048
     Dates: end: 20111022
  115. ENCERON [Concomitant]
     Indication: PLASMA CELL MYELOMA
     Route: 048
     Dates: end: 20111022
  116. DIART [Concomitant]
     Indication: OEDEMA
     Dosage: 30 MILLIGRAM
     Route: 048
     Dates: start: 200910
  117. FOSAMAC [Concomitant]
     Indication: PLASMA CELL MYELOMA
     Route: 048
     Dates: start: 200909, end: 20110409
  118. FOSAMAC [Concomitant]
     Route: 048
     Dates: start: 20110410, end: 20120302
  119. GOREISAN [Concomitant]
     Indication: OEDEMA
     Dosage: 5 GRAM
     Route: 048
     Dates: start: 200910, end: 20101121
  120. ALDACTONE A [Concomitant]
     Indication: OEDEMA
     Dosage: 25 MILLIGRAM
     Route: 048
     Dates: start: 20110312
  121. ZOMETA [Concomitant]
     Indication: PLASMA CELL MYELOMA
     Dosage: 1 A
     Route: 041
     Dates: start: 20120303
  122. METHYCOBAL [Concomitant]
     Indication: PRODUCT USED FOR UNKNOWN INDICATION
     Dosage: 3 TABLET
     Route: 048
     Dates: start: 20100807
  123. MAGMITT [Concomitant]
     Indication: CONSTIPATION
     Dosage: 3 TABLET
     Route: 048
     Dates: start: 200909, end: 20111022

REACTIONS (6)
  - Arrhythmia [Recovered/Resolved]
  - Arthralgia [Not Recovered/Not Resolved]
  - Anaemia [Not Recovered/Not Resolved]
  - Platelet count decreased [Recovered/Resolved]
  - White blood cell count decreased [Not Recovered/Not Resolved]
  - Neutrophil count decreased [Not Recovered/Not Resolved]
